FAERS Safety Report 9977753 (Version 1)
Quarter: 2014Q1

REPORT INFORMATION
  Report Type: Report from Study
  Country: US (occurrence: US)
  Receive Date: 20140306
  Receipt Date: 20140306
  Transmission Date: 20141002
  Serious: No
  Sender: FDA-Public Use
  Company Number: US-ABBVIE-13P-163-1163544-00

PATIENT
  Age: 33 Year
  Sex: Female

DRUGS (7)
  1. HUMIRA [Suspect]
     Indication: COLITIS ULCERATIVE
     Dates: start: 20131008
  2. HUMIRA [Suspect]
     Dates: start: 20131022
  3. ASACOL HD [Concomitant]
     Indication: PRODUCT USED FOR UNKNOWN INDICATION
     Dosage: DAILY
  4. AZATHIOPRINE [Concomitant]
     Indication: PRODUCT USED FOR UNKNOWN INDICATION
     Dosage: DAILY
  5. CANASA [Concomitant]
     Indication: COLITIS ULCERATIVE
  6. IRON [Concomitant]
     Indication: SUPPLEMENTATION THERAPY
  7. CALCIUM [Concomitant]
     Indication: SUPPLEMENTATION THERAPY

REACTIONS (1)
  - Injection site bruising [Recovering/Resolving]
